FAERS Safety Report 4270977-6 (Version None)
Quarter: 2004Q1

REPORT INFORMATION
  Report Type: 
  Country: None (occurrence: None)
  Receive Date: 20040114
  Receipt Date: 20030825
  Transmission Date: 20041129
  Serious: Yes (Death, Hospitalization)
  Sender: FDA-Public Use
  Company Number: WAES 0308USA02599

PATIENT
  Sex: Male
  Weight: 49 kg

DRUGS (1)
  1. STROMECTOL [Suspect]
     Indication: ONCHOCERCIASIS
     Route: 048
     Dates: start: 20030620, end: 20030620

REACTIONS (5)
  - APHONIA [None]
  - ARTHRALGIA [None]
  - ASTHENIA [None]
  - MYALGIA [None]
  - VERTIGO [None]
